FAERS Safety Report 13205801 (Version 1)
Quarter: 2017Q1

REPORT INFORMATION
  Report Type: Spontaneous
  Country: SI (occurrence: SI)
  Receive Date: 20170209
  Receipt Date: 20170209
  Transmission Date: 20170428
  Serious: Yes (Death, Other)
  Sender: FDA-Public Use
  Company Number: SI-AMGEN-SVNSP2017018373

PATIENT
  Age: 70 Year
  Sex: Female

DRUGS (2)
  1. PROTELOS [Concomitant]
     Active Substance: STRONTIUM RANELATE
  2. PROLIA [Suspect]
     Active Substance: DENOSUMAB
     Indication: OSTEOPOROSIS POSTMENOPAUSAL
     Route: 065

REACTIONS (2)
  - Myocardial ischaemia [Fatal]
  - Compression fracture [Unknown]

NARRATIVE: CASE EVENT DATE: 2016
